FAERS Safety Report 20158747 (Version 3)
Quarter: 2022Q1

REPORT INFORMATION
  Report Type: Report from Study
  Country: US (occurrence: US)
  Receive Date: 20211208
  Receipt Date: 20220327
  Transmission Date: 20220423
  Serious: Yes (Other)
  Sender: FDA-Public Use
  Company Number: US-ABBVIE-21K-163-3868497-00

PATIENT
  Age: 62 Year
  Sex: Female

DRUGS (5)
  1. HUMIRA [Suspect]
     Active Substance: ADALIMUMAB
     Indication: Uveitis
     Dosage: CITRATE FREE
     Route: 058
  2. HUMIRA [Suspect]
     Active Substance: ADALIMUMAB
     Indication: Crohn^s disease
     Dosage: CITRATE FREE
     Route: 058
  3. MODERNA COVID-19 VACCINE [Suspect]
     Active Substance: ELASOMERAN
     Indication: COVID-19 immunisation
     Dosage: 1ST DOSE
     Route: 030
     Dates: start: 20210403, end: 20210403
  4. MODERNA COVID-19 VACCINE [Suspect]
     Active Substance: ELASOMERAN
     Dosage: 2ND DOSE
     Route: 030
     Dates: start: 20210501, end: 20210501
  5. MODERNA COVID-19 VACCINE [Suspect]
     Active Substance: ELASOMERAN
     Dosage: BOOSTER DOSE MODERNA
     Route: 030
     Dates: start: 20211227, end: 20211227

REACTIONS (16)
  - Intestinal obstruction [Unknown]
  - Mass [Unknown]
  - Scab [Unknown]
  - Papule [Unknown]
  - Vogt-Koyanagi-Harada disease [Unknown]
  - Photophobia [Unknown]
  - Injection site scab [Unknown]
  - Insomnia [Unknown]
  - Visual impairment [Recovering/Resolving]
  - Inflammation [Unknown]
  - Injury [Unknown]
  - Injection site papule [Unknown]
  - Injection site pain [Unknown]
  - Abdominal pain upper [Unknown]
  - Dehydration [Unknown]
  - Epistaxis [Unknown]

NARRATIVE: CASE EVENT DATE: 20210501
